FAERS Safety Report 18782788 (Version 1)
Quarter: 2021Q1

REPORT INFORMATION
  Report Type: Spontaneous
  Country: US (occurrence: US)
  Receive Date: 20210125
  Receipt Date: 20210125
  Transmission Date: 20210419
  Serious: No
  Sender: FDA-Public Use
  Company Number: US-ALLERGAN-2037114US

PATIENT
  Age: 50 Year
  Sex: Female

DRUGS (4)
  1. RESTASIS [Suspect]
     Active Substance: CYCLOSPORINE
     Indication: DRY EYE
     Dosage: 2 GTT, BID
     Route: 047
     Dates: start: 202009
  2. GABAPENTIN. [Concomitant]
     Active Substance: GABAPENTIN
     Indication: MENOPAUSE
  3. SYSTANE (HYPROMELLOSE 2910 (4000 MPA.S)) [Concomitant]
     Active Substance: HYPROMELLOSE 2910 (4000 MPA.S)
  4. GABAPENTIN. [Concomitant]
     Active Substance: GABAPENTIN
     Indication: HOT FLUSH

REACTIONS (4)
  - Product delivery mechanism issue [Unknown]
  - Eye pain [Not Recovered/Not Resolved]
  - Accidental exposure to product [Unknown]
  - Incorrect dose administered by device [Unknown]

NARRATIVE: CASE EVENT DATE: 20200922
